FAERS Safety Report 15992009 (Version 1)
Quarter: 2019Q1

REPORT INFORMATION
  Report Type: Spontaneous
  Country: US (occurrence: US)
  Receive Date: 20190221
  Receipt Date: 20190221
  Transmission Date: 20190418
  Serious: Yes (Death)
  Sender: FDA-Public Use
  Company Number: US-LA JOLLA PHARMACEUTICAL COMPANY-0000279

PATIENT
  Sex: Male

DRUGS (5)
  1. GIAPREZA [Suspect]
     Active Substance: ANGIOTENSIN II
     Indication: HYPOTENSION
     Dosage: 10 NG/KG/MIN, UNK
     Dates: start: 20190208, end: 20190208
  2. GIAPREZA [Suspect]
     Active Substance: ANGIOTENSIN II
     Dosage: 20 NG/KG/MIN, UNK
     Dates: start: 20190208, end: 20190208
  3. NEOSYNEPHRINE [Concomitant]
     Active Substance: PHENYLEPHRINE HYDROCHLORIDE
     Indication: HYPOTENSION
     Dosage: UNK
     Dates: start: 20190208
  4. NOREPINEPHRINE. [Concomitant]
     Active Substance: NOREPINEPHRINE
     Indication: HYPOTENSION
     Dosage: UNK
     Dates: start: 20190208
  5. EPINEPHRINE. [Concomitant]
     Active Substance: EPINEPHRINE
     Indication: HYPOTENSION
     Dosage: UNK
     Dates: start: 20190208

REACTIONS (2)
  - Thrombosis in device [Unknown]
  - Death [Fatal]

NARRATIVE: CASE EVENT DATE: 20190208
